FAERS Safety Report 7285742-5 (Version None)
Quarter: 2011Q1

REPORT INFORMATION
  Report Type: 
  Country: None (occurrence: None)
  Receive Date: 20110124
  Receipt Date: 20110110
  Transmission Date: 20110831
  Serious: Yes (Hospitalization, Other)
  Sender: FDA-Public Use
  Company Number: WSDF_00723

PATIENT
  Sex: Female
  Weight: 127.9144 kg

DRUGS (9)
  1. LOMOTIL [Concomitant]
  2. WINRHO SDF LIQUID [Suspect]
  3. AVASTIN [Concomitant]
  4. WINRHO SDF LIQUID [Suspect]
  5. XELODA [Concomitant]
  6. WINRHO SDF LIQUID [Suspect]
     Indication: IDIOPATHIC THROMBOCYTOPENIC PURPURA
     Dosage: SEE IMAGE
     Route: 042
     Dates: start: 20080305, end: 20080305
  7. WINRHO SDF LIQUID [Suspect]
     Indication: IDIOPATHIC THROMBOCYTOPENIC PURPURA
     Dosage: SEE IMAGE
     Route: 042
     Dates: start: 20080305, end: 20080305
  8. WINRHO SDF LIQUID [Suspect]
     Indication: IDIOPATHIC THROMBOCYTOPENIC PURPURA
     Dosage: SEE IMAGE
     Route: 042
     Dates: start: 20080305, end: 20080305
  9. SYNTHROID [Concomitant]

REACTIONS (12)
  - DEHYDRATION [None]
  - AUTOIMMUNE HEPATITIS [None]
  - NAUSEA [None]
  - DIARRHOEA [None]
  - DISEASE PROGRESSION [None]
  - VOMITING [None]
  - PYREXIA [None]
  - IDIOPATHIC THROMBOCYTOPENIC PURPURA [None]
  - COAGULOPATHY [None]
  - DISSEMINATED INTRAVASCULAR COAGULATION [None]
  - HAEMOLYTIC ANAEMIA [None]
  - INTERNATIONAL NORMALISED RATIO INCREASED [None]
